FAERS Safety Report 5229068-X (Version None)
Quarter: 2007Q1

REPORT INFORMATION
  Report Type: 
  Country: None (occurrence: None)
  Receive Date: 20061201
  Receipt Date: 20060811
  Transmission Date: 20070707
  Serious: No
  Sender: FDA-Public Use
  Company Number: US200608002758

PATIENT
  Age: 90 Year
  Sex: Female

DRUGS (1)
  1. CYMBALTA [Suspect]
     Indication: ANXIETY
     Dosage: 30 MG
     Dates: start: 20060810, end: 20060811

REACTIONS (8)
  - ANOREXIA [None]
  - ANXIETY [None]
  - DEPRESSION [None]
  - MALAISE [None]
  - MIDDLE INSOMNIA [None]
  - NAUSEA [None]
  - NERVOUSNESS [None]
  - PARAESTHESIA [None]
